FAERS Safety Report 8308813-0 (Version None)
Quarter: 2012Q1

REPORT INFORMATION
  Report Type: 
  Country: None (occurrence: None)
  Receive Date: 20120327
  Receipt Date: 20110418
  Transmission Date: 20120608
  Serious: Yes (Other)
  Sender: FDA-Public Use
  Company Number: PHHY2011US17305

PATIENT
  Age: 65 Year
  Sex: Female
  Weight: 59.9 kg

DRUGS (8)
  1. GLEEVEC [Suspect]
     Indication: ACUTE LYMPHOCYTIC LEUKAEMIA
     Dosage: 200 MG, QD, ORAL
     Route: 048
     Dates: start: 20080101, end: 20110101
  2. FAMOTIDINE [Concomitant]
  3. ANTIHYPERTENSIVE DRUGS (NO INGREDIENTS/SUBSTANCES) [Concomitant]
  4. MAGNESIUM (MAGNESIUM) [Concomitant]
  5. ZOFRAN [Concomitant]
  6. POTASSIUM CHLORIDE [Concomitant]
  7. SIMVASTATIN [Concomitant]
  8. METOPROLOL TARTRATE [Concomitant]

REACTIONS (2)
  - OPTIC NEURITIS [None]
  - PAPILLOEDEMA [None]
